FAERS Safety Report 7246725-4 (Version None)
Quarter: 2011Q1

REPORT INFORMATION
  Report Type: 
  Country: None (occurrence: None)
  Receive Date: 20110127
  Receipt Date: 20110117
  Transmission Date: 20110831
  Serious: Yes (Life-Threatening, Other)
  Sender: FDA-Public Use
  Company Number: JP-JNJFOC-20101101867

PATIENT
  Sex: Female
  Weight: 53 kg

DRUGS (12)
  1. DOXORUBICIN HCL [Suspect]
     Route: 042
  2. PROTECADIN [Concomitant]
     Indication: PROPHYLAXIS
     Route: 048
  3. NOVAMIN [Concomitant]
     Indication: ANTIEMETIC SUPPORTIVE CARE
     Route: 048
  4. DOXORUBICIN HCL [Suspect]
     Route: 042
  5. DOXORUBICIN HCL [Suspect]
     Route: 042
  6. DOXORUBICIN HCL [Suspect]
     Route: 042
  7. HANGE-SHASHIN-TO (CHINESE HERBAL MEDICINE) [Concomitant]
     Indication: PROPHYLAXIS
     Route: 048
  8. DOXORUBICIN HCL [Suspect]
     Indication: OVARIAN CANCER RECURRENT
     Route: 042
  9. MUCOSTA [Concomitant]
     Indication: PROPHYLAXIS
     Route: 048
  10. JUZEN-TAIHO-TO [Concomitant]
     Indication: PROPHYLAXIS
     Route: 048
  11. JUZEN-TAIHO-TO [Concomitant]
     Indication: BONE MARROW FAILURE
     Route: 048
  12. VITANEURIN [Concomitant]
     Indication: PROPHYLAXIS
     Route: 048

REACTIONS (2)
  - INTERSTITIAL LUNG DISEASE [None]
  - LIVER ABSCESS [None]
